FAERS Safety Report 5501670-7 (Version None)
Quarter: 2007Q4

REPORT INFORMATION
  Report Type: 
  Country: None (occurrence: None)
  Receive Date: 20071026
  Receipt Date: 20071026
  Transmission Date: 20080405
  Serious: Yes (Other)
  Sender: FDA-Public Use
  Company Number: None

PATIENT
  Age: 43 Year
  Sex: Female
  Weight: 127.0072 kg

DRUGS (3)
  1. CYMBALTA [Suspect]
     Indication: DEPRESSION
     Dosage: 60 MG ONCE A DAY PO
     Route: 048
     Dates: start: 20070125, end: 20071001
  2. CYMBALTA [Suspect]
     Indication: DIABETIC NEUROPATHY
     Dosage: 60 MG ONCE A DAY PO
     Route: 048
     Dates: start: 20070125, end: 20071001
  3. CYMBALTA [Suspect]
     Indication: NEURALGIA
     Dosage: 60 MG ONCE A DAY PO
     Route: 048
     Dates: start: 20070125, end: 20071001

REACTIONS (8)
  - BALANCE DISORDER [None]
  - DEPRESSION [None]
  - DIZZINESS [None]
  - DRUG WITHDRAWAL SYNDROME [None]
  - HEADACHE [None]
  - HYPERACUSIS [None]
  - NAUSEA [None]
  - TINNITUS [None]
